FAERS Safety Report 4820369-3 (Version None)
Quarter: 2005Q4

REPORT INFORMATION
  Report Type: 
  Country: None (occurrence: None)
  Receive Date: 20051104
  Receipt Date: 20050915
  Transmission Date: 20060501
  Serious: Yes (Hospitalization, Other)
  Sender: FDA-Public Use
  Company Number: US-BRISTOL-MYERS SQUIBB COMPANY-13111745

PATIENT
  Age: 66 Year
  Sex: Female
  Weight: 149 kg

DRUGS (8)
  1. ERBITUX [Suspect]
     Indication: COLORECTAL CANCER METASTATIC
     Dosage: LOAD DOSE. RECEIVED 435 MG SECOND DOSE. GIVEN 29-AUG, 07-SEP, 16-SEP, 23-SEP + 03-OCT-05.
     Route: 042
     Dates: start: 20050829, end: 20050829
  2. KYTRIL [Concomitant]
     Indication: PREMEDICATION
  3. DEXAMETHASONE [Concomitant]
     Indication: PREMEDICATION
  4. BENADRYL [Concomitant]
     Indication: PREMEDICATION
  5. HYDROMORPHONE [Concomitant]
  6. FENTANYL [Concomitant]
  7. COUMADIN [Concomitant]
  8. FASLODEX [Concomitant]

REACTIONS (2)
  - HEADACHE [None]
  - MIGRAINE [None]
